FAERS Safety Report 9958138 (Version 1)
Quarter: 2014Q1

REPORT INFORMATION
  Report Type: Report from Study
  Country: US (occurrence: US)
  Receive Date: 20140304
  Receipt Date: 20140304
  Transmission Date: 20141002
  Serious: No
  Sender: FDA-Public Use
  Company Number: US-ABBVIE-13P-163-1091556-00

PATIENT
  Sex: Female

DRUGS (17)
  1. HUMIRA [Suspect]
     Indication: CROHN^S DISEASE
     Dosage: ON DAY ONE
     Route: 058
     Dates: start: 20130513
  2. HUMIRA [Suspect]
     Dosage: ON DAY 15
  3. HUMIRA [Suspect]
  4. AMBIEN [Concomitant]
     Indication: PRODUCT USED FOR UNKNOWN INDICATION
  5. ZOLOFT [Concomitant]
     Indication: PRODUCT USED FOR UNKNOWN INDICATION
  6. LOSARTAN POTASSIUM [Concomitant]
     Indication: PRODUCT USED FOR UNKNOWN INDICATION
  7. METFORMIN 1A PHARMA [Concomitant]
     Indication: PRODUCT USED FOR UNKNOWN INDICATION
  8. ASACOL [Concomitant]
     Indication: PRODUCT USED FOR UNKNOWN INDICATION
  9. LEVEMIR FLEXPEN [Concomitant]
     Indication: PRODUCT USED FOR UNKNOWN INDICATION
     Dosage: 100 UNITS/ML
  10. NEXIUM [Concomitant]
     Indication: PRODUCT USED FOR UNKNOWN INDICATION
  11. AMITRIPTYLIN [Concomitant]
     Indication: PRODUCT USED FOR UNKNOWN INDICATION
  12. VIT D2 [Concomitant]
     Indication: PRODUCT USED FOR UNKNOWN INDICATION
     Dosage: 1.25MG (50,000 UNIT)
  13. EQL CALCIUM [Concomitant]
     Indication: PRODUCT USED FOR UNKNOWN INDICATION
  14. CVS FISH OIL [Concomitant]
     Indication: PRODUCT USED FOR UNKNOWN INDICATION
     Dosage: SOFTGEL
  15. LEVOXYL [Concomitant]
     Indication: PRODUCT USED FOR UNKNOWN INDICATION
  16. ENTOCORT EC [Concomitant]
     Indication: PRODUCT USED FOR UNKNOWN INDICATION
  17. BYETTA [Concomitant]
     Indication: PRODUCT USED FOR UNKNOWN INDICATION
     Dosage: PEN INJECTION

REACTIONS (1)
  - Nausea [Unknown]
